FAERS Safety Report 9361266 (Version 1)
Quarter: 2013Q2

REPORT INFORMATION
  Report Type: Spontaneous
  Country: DE (occurrence: DE)
  Receive Date: 20130621
  Receipt Date: 20130621
  Transmission Date: 20140414
  Serious: Yes (Other)
  Sender: FDA-Public Use
  Company Number: DE-JNJFOC-20130610524

PATIENT
  Sex: 0

DRUGS (9)
  1. ABCIXIMAB [Suspect]
     Indication: MYOCARDIAL INFARCTION
     Dosage: BOLUS OF 0.25 MG/KG FOLLOWED BY AN INFUSION OF 0.125 UG/KG/MIN OVER 12 HOURS.
     Route: 042
  2. ASA [Concomitant]
     Route: 065
  3. CLOPIDOGREL [Concomitant]
  4. UNFRACTIONATED HEPARIN [Concomitant]
     Route: 065
  5. ENOXAPARIN [Concomitant]
     Route: 065
  6. STATINS [Concomitant]
     Route: 065
  7. BETA BLOCKERS, NOS [Concomitant]
     Route: 065
  8. ANGIOTENSIN-CONVERTING ENZYME INHIBITORS [Concomitant]
     Route: 065
  9. ANGIOTENSIN-CONVERTING ENZYME INHIBITORS [Concomitant]
     Route: 065

REACTIONS (1)
  - Cerebrovascular accident [Unknown]
